FAERS Safety Report 7826279-1 (Version None)
Quarter: 2011Q4

REPORT INFORMATION
  Report Type: 
  Country: None (occurrence: None)
  Receive Date: 20111020
  Receipt Date: 20111013
  Transmission Date: 20120403
  Serious: No
  Sender: FDA-Public Use
  Company Number: US-BIOGENIDEC-2011BI035902

PATIENT
  Age: 37 Year
  Sex: Female

DRUGS (4)
  1. TYSABRI [Suspect]
     Route: 042
     Dates: end: 20101101
  2. AVONEX [Concomitant]
     Indication: MULTIPLE SCLEROSIS
     Route: 030
     Dates: start: 20031105
  3. TYSABRI [Suspect]
     Indication: MULTIPLE SCLEROSIS
     Route: 042
     Dates: start: 20061121
  4. STEROIDS [Concomitant]
     Indication: PRODUCT USED FOR UNKNOWN INDICATION

REACTIONS (10)
  - OVARIAN CYST [None]
  - FATIGUE [None]
  - GAIT DISTURBANCE [None]
  - WEIGHT DECREASED [None]
  - ASTHENIA [None]
  - DRUG INEFFECTIVE [None]
  - MUSCLE ATROPHY [None]
  - MUSCLE SPASMS [None]
  - DRUG EFFECT DECREASED [None]
  - MUSCULAR WEAKNESS [None]
